FAERS Safety Report 20476080 (Version 2)
Quarter: 2022Q1

REPORT INFORMATION
  Report Type: Spontaneous
  Country: RU (occurrence: RU)
  Receive Date: 20220215
  Receipt Date: 20220216
  Transmission Date: 20220423
  Serious: Yes (Other)
  Sender: FDA-Public Use
  Company Number: RU-009507513-2202RUS002872

PATIENT
  Age: 57 Year
  Sex: Male

DRUGS (3)
  1. PEMBROLIZUMAB [Suspect]
     Active Substance: PEMBROLIZUMAB
     Dosage: 200 MILLIGRAM, A CYCLE OF 21 DAYS
  2. PACLITAXEL [Concomitant]
     Active Substance: PACLITAXEL
     Dosage: 135-175 MG/M2, A CYCLE OF 21 DAYS
  3. CARBOPLATIN [Concomitant]
     Active Substance: CARBOPLATIN
     Dosage: 620 MILLIGRAM, A CYCLE OF 21 DAYS

REACTIONS (7)
  - Neutropenia [Unknown]
  - Neuropathy peripheral [Unknown]
  - Hypothyroidism [Recovered/Resolved]
  - Systemic toxicity [Unknown]
  - Alopecia [Unknown]
  - Anaemia [Unknown]
  - Asthenia [Recovered/Resolved]
